FAERS Safety Report 24587782 (Version 1)
Quarter: 2024Q4

REPORT INFORMATION
  Report Type: Report from Study
  Country: US (occurrence: US)
  Receive Date: 20241107
  Receipt Date: 20241107
  Transmission Date: 20250114
  Serious: Yes (Hospitalization)
  Sender: ABBVIE
  Company Number: US-ABBVIE-5989773

PATIENT
  Age: 39 Year
  Sex: Male

DRUGS (1)
  1. RINVOQ [Suspect]
     Active Substance: UPADACITINIB
     Indication: Colitis ulcerative
     Route: 048
     Dates: start: 20240903, end: 20241101

REACTIONS (3)
  - Splenic vein thrombosis [Not Recovered/Not Resolved]
  - Pain [Unknown]
  - Feeling abnormal [Unknown]

NARRATIVE: CASE EVENT DATE: 20241101
